FAERS Safety Report 20581379 (Version 1)
Quarter: 2022Q1

REPORT INFORMATION
  Report Type: Spontaneous
  Country: FR (occurrence: FR)
  Receive Date: 20220311
  Receipt Date: 20220311
  Transmission Date: 20220423
  Serious: Yes (Hospitalization)
  Sender: FDA-Public Use
  Company Number: None

PATIENT
  Age: 24 Year
  Sex: Female
  Weight: 141 kg

DRUGS (4)
  1. ARIPIPRAZOLE [Interacting]
     Active Substance: ARIPIPRAZOLE
     Indication: Bipolar disorder
     Dosage: UNIT DOSE 30MG
     Route: 048
     Dates: start: 20200729
  2. LOXAPINE [Interacting]
     Active Substance: LOXAPINE
     Indication: Agitation
     Dosage: UNIT DOSE 75MG
     Route: 048
     Dates: start: 20220120, end: 20220127
  3. ZOPICLONE [Concomitant]
     Active Substance: ZOPICLONE
     Dosage: UNIT DOSE 7.5MG
     Route: 048
     Dates: start: 20220120, end: 20220131
  4. DIAZEPAM [Concomitant]
     Active Substance: DIAZEPAM
     Dosage: UNIT DOSE 30MG
     Route: 048
     Dates: start: 20220120, end: 20220201

REACTIONS (2)
  - Neuroleptic malignant syndrome [Recovering/Resolving]
  - Drug interaction [Recovering/Resolving]

NARRATIVE: CASE EVENT DATE: 20220128
